FAERS Safety Report 14071902 (Version 6)
Quarter: 2019Q2

REPORT INFORMATION
  Report Type: Spontaneous
  Country: US (occurrence: US)
  Receive Date: 20171010
  Receipt Date: 20190502
  Transmission Date: 20190711
  Serious: Yes (Other)
  Sender: FDA-Public Use
  Company Number: US-SA-2017SA141608

PATIENT
  Age: 58 Year
  Sex: Male

DRUGS (20)
  1. FENOFIBRATE. [Concomitant]
     Active Substance: FENOFIBRATE
  2. ALRES [Concomitant]
  3. AZITHROMYCIN ANHYDROUS. [Concomitant]
     Active Substance: AZITHROMYCIN ANHYDROUS
  4. VALACYCLOVIR [Concomitant]
     Active Substance: VALACYCLOVIR HYDROCHLORIDE
  5. DUPIXENT [Suspect]
     Active Substance: DUPILUMAB
     Indication: DERMATITIS ATOPIC
     Dosage: 300 MG,QOW
     Route: 058
     Dates: start: 20170714
  6. ALPRAZOLAM. [Concomitant]
     Active Substance: ALPRAZOLAM
  7. METRONIDAZOLE. [Concomitant]
     Active Substance: METRONIDAZOLE
  8. EUCRISA [Concomitant]
     Active Substance: CRISABOROLE
  9. ALLOPURINOL. [Concomitant]
     Active Substance: ALLOPURINOL
  10. CLOBETASOL [Concomitant]
     Active Substance: CLOBETASOL
  11. VITAMIN D3 [Concomitant]
     Active Substance: CHOLECALCIFEROL
  12. THIAMINE. [Concomitant]
     Active Substance: THIAMINE
  13. AMITRIPTYLIN [Concomitant]
     Active Substance: AMITRIPTYLINE
  14. VIRTUSSIN AC [Concomitant]
     Active Substance: CODEINE PHOSPHATE\GUAIFENESIN
  15. OLOPATADINE. [Concomitant]
     Active Substance: OLOPATADINE
  16. PROAIR HFA [Concomitant]
     Active Substance: ALBUTEROL SULFATE
  17. TAMSULOSIN [Concomitant]
     Active Substance: TAMSULOSIN
  18. ELIDEL [Concomitant]
     Active Substance: PIMECROLIMUS
  19. VITAMIN B1 [THIAMINE HYDROCHLORIDE] [Concomitant]
  20. DIOVAN [Concomitant]
     Active Substance: VALSARTAN

REACTIONS (13)
  - Paraesthesia [Not Recovered/Not Resolved]
  - Lacrimation increased [Not Recovered/Not Resolved]
  - Cough [Recovering/Resolving]
  - Eczema [Recovered/Resolved]
  - Eye allergy [Not Recovered/Not Resolved]
  - Nasopharyngitis [Recovering/Resolving]
  - Abdominal pain upper [Not Recovered/Not Resolved]
  - Eye pruritus [Not Recovered/Not Resolved]
  - Eye swelling [Not Recovered/Not Resolved]
  - Hypersensitivity [Not Recovered/Not Resolved]
  - Dermatitis atopic [Not Recovered/Not Resolved]
  - Diverticulitis [Not Recovered/Not Resolved]
  - Abdominal discomfort [Not Recovered/Not Resolved]

NARRATIVE: CASE EVENT DATE: 201707
